FAERS Safety Report 20002584 (Version 1)
Quarter: 2021Q4

REPORT INFORMATION
  Report Type: Spontaneous
  Country: DE (occurrence: DE)
  Receive Date: 20211027
  Receipt Date: 20211027
  Transmission Date: 20220303
  Serious: Yes (Death, Other)
  Sender: FDA-Public Use
  Company Number: None

PATIENT
  Sex: Female

DRUGS (12)
  1. BACLOFEN [Suspect]
     Active Substance: BACLOFEN
     Route: 065
  2. AMLODIPINE BESYLATE [Suspect]
     Active Substance: AMLODIPINE BESYLATE
     Route: 065
  3. ASPIRIN [Suspect]
     Active Substance: ASPIRIN
     Route: 065
  4. FENTANYL [Suspect]
     Active Substance: FENTANYL
     Route: 065
  5. GABAPENTIN [Suspect]
     Active Substance: GABAPENTIN
     Route: 065
  6. PANTOPRAZOLE SODIUM [Suspect]
     Active Substance: PANTOPRAZOLE SODIUM
     Route: 065
  7. RAMIPRIL [Suspect]
     Active Substance: RAMIPRIL
     Route: 065
  8. SIMVASTATIN [Suspect]
     Active Substance: SIMVASTATIN
     Route: 065
  9. TORSEMIDE [Suspect]
     Active Substance: TORSEMIDE
     Route: 065
  10. MOVICOL [Suspect]
     Active Substance: POLYETHYLENE GLYCOL 3350\POTASSIUM CHLORIDE\SODIUM BICARBONATE\SODIUM CHLORIDE
     Route: 065
  11. ACTRAPHANE [Suspect]
     Active Substance: INSULIN HUMAN
     Route: 065
  12. XARELTO [Suspect]
     Active Substance: RIVAROXABAN
     Route: 065

REACTIONS (4)
  - Sepsis [Fatal]
  - Dehydration [Fatal]
  - Lactic acidosis [Fatal]
  - Sinusitis [Fatal]
